FAERS Safety Report 18558686 (Version 1)
Quarter: 2020Q4

REPORT INFORMATION
  Report Type: Spontaneous
  Country: DE (occurrence: DE)
  Receive Date: 20201130
  Receipt Date: 20201130
  Transmission Date: 20210114
  Serious: Yes (Hospitalization)
  Sender: FDA-Public Use
  Company Number: DE-TEVA-2020-DE-1853064

PATIENT
  Age: 51 Year
  Sex: Female
  Weight: 73.9 kg

DRUGS (6)
  1. PANTOPRAZOL [Concomitant]
     Active Substance: PANTOPRAZOLE SODIUM
     Dosage: 40 MILLIGRAM DAILY; 40 MG, 1-0-0-0
  2. DOCETAXEL. [Suspect]
     Active Substance: DOCETAXEL
     Dosage: LAST 03082020
     Route: 065
     Dates: end: 20200803
  3. OXALIPLATIN. [Suspect]
     Active Substance: OXALIPLATIN
     Dosage: LAST 03082020
     Route: 065
     Dates: end: 20200803
  4. MCP [Concomitant]
     Active Substance: METOCLOPRAMIDE HYDROCHLORIDE
     Dosage: 10 MG, 2X
  5. FLUOROURACIL. [Suspect]
     Active Substance: FLUOROURACIL
     Dosage: LAST 03082020
     Route: 065
     Dates: end: 20200803
  6. FOLINSAEURE [Suspect]
     Active Substance: LEUCOVORIN
     Dosage: LAST 03082020
     Route: 065
     Dates: end: 20200803

REACTIONS (7)
  - Nausea [Unknown]
  - General physical health deterioration [Unknown]
  - Vomiting [Unknown]
  - Eructation [Unknown]
  - Flatulence [Unknown]
  - Abdominal distension [Unknown]
  - Condition aggravated [Unknown]
